FAERS Safety Report 7575029-5 (Version None)
Quarter: 2011Q2

REPORT INFORMATION
  Report Type: 
  Country: None (occurrence: None)
  Receive Date: 20110627
  Receipt Date: 20110616
  Transmission Date: 20111010
  Serious: Yes (Other)
  Sender: FDA-Public Use
  Company Number: US-ASTRAZENECA-2010SE30855

PATIENT
  Age: 74 Year
  Sex: Female

DRUGS (4)
  1. ZANTAC [Concomitant]
  2. CRESTOR [Suspect]
     Route: 048
  3. PRILOSEC [Concomitant]
  4. NEXIUM [Suspect]
     Route: 048

REACTIONS (4)
  - DRUG DOSE OMISSION [None]
  - OESOPHAGEAL CARCINOMA [None]
  - OESOPHAGOSCOPY [None]
  - ASTHENIA [None]
